FAERS Safety Report 21713590 (Version 1)
Quarter: 2022Q4

REPORT INFORMATION
  Report Type: Spontaneous
  Country: US (occurrence: US)
  Receive Date: 20221212
  Receipt Date: 20221212
  Transmission Date: 20230113
  Serious: No
  Sender: FDA-Public Use
  Company Number: US-ORG100016242-2021000803

PATIENT
  Age: 70 Year
  Sex: Female

DRUGS (1)
  1. EXPAREL [Suspect]
     Active Substance: BUPIVACAINE
     Indication: Rotator cuff repair
     Dosage: NOT PROVIDED
     Route: 065
     Dates: start: 20211111, end: 20211111

REACTIONS (3)
  - Dry mouth [Not Recovered/Not Resolved]
  - Tinnitus [Not Recovered/Not Resolved]
  - Flatulence [Not Recovered/Not Resolved]
